FAERS Safety Report 9529917 (Version 2)
Quarter: 2013Q3

REPORT INFORMATION
  Report Type: Spontaneous
  Country: US (occurrence: US)
  Receive Date: 20130917
  Receipt Date: 20130917
  Transmission Date: 20140515
  Serious: Yes (Hospitalization)
  Sender: FDA-Public Use
  Company Number: US-DENDREON CORPORATION-2013PROUSA03019

PATIENT
  Age: 68 Year
  Sex: Male
  Weight: 94.33 kg

DRUGS (6)
  1. PROVENGE [Suspect]
     Indication: PROSTATE CANCER METASTATIC
     Dosage: 250 ML, SINGLE
     Route: 042
     Dates: start: 20130624, end: 20130624
  2. PROVENGE [Suspect]
     Dosage: 250 ML, SINGLE
     Route: 042
     Dates: start: 20130708, end: 20130708
  3. GLYBURIDE [Concomitant]
  4. DIOVAN [Concomitant]
  5. ZOMETA [Concomitant]
  6. MARINOL [Concomitant]

REACTIONS (3)
  - Bacteraemia [Unknown]
  - Pyrexia [Unknown]
  - Culture positive [Unknown]
